APPROVED DRUG PRODUCT: THIOTEPA
Active Ingredient: THIOTEPA
Strength: 15MG/VIAL
Dosage Form/Route: INJECTABLE;INJECTION
Application: A075547 | Product #001 | TE Code: AP
Applicant: WEST-WARD PHARMACEUTICALS INTERNATIONAL LTD
Approved: Apr 2, 2001 | RLD: No | RS: Yes | Type: RX